FAERS Safety Report 9662390 (Version 2)
Quarter: 2013Q4

REPORT INFORMATION
  Report Type: Spontaneous
  Country: US (occurrence: US)
  Receive Date: 20131031
  Receipt Date: 20131031
  Transmission Date: 20140711
  Serious: No
  Sender: FDA-Public Use
  Company Number: US-PURDUE-USA-2011-0067605

PATIENT
  Age: 75 Year
  Sex: Female
  Weight: 63.95 kg

DRUGS (3)
  1. OXYCONTIN (NDA 22-272) [Suspect]
     Indication: PROCEDURAL PAIN
     Dosage: 20 MG, BID
     Route: 048
     Dates: start: 20110411, end: 20110412
  2. LYRICA [Suspect]
     Indication: PAIN
     Dosage: 150 MG, BID
     Route: 048
     Dates: start: 20110411, end: 20110413
  3. PERCOCET /00867901/ [Suspect]
     Indication: PROCEDURAL PAIN
     Dosage: 5 MG, Q4H
     Route: 048
     Dates: start: 20110411, end: 20110412

REACTIONS (13)
  - Eye movement disorder [Recovering/Resolving]
  - Respiratory disorder [Recovering/Resolving]
  - Muscular weakness [Recovering/Resolving]
  - Dysphagia [Recovering/Resolving]
  - Speech disorder [Recovering/Resolving]
  - Vomiting [Recovering/Resolving]
  - Drug hypersensitivity [Recovering/Resolving]
  - Chills [Recovering/Resolving]
  - Hyperhidrosis [Recovering/Resolving]
  - Thinking abnormal [Recovered/Resolved]
  - Somnolence [Recovered/Resolved]
  - Confusional state [Recovering/Resolving]
  - Unevaluable event [Recovered/Resolved]
